FAERS Safety Report 16633631 (Version 1)
Quarter: 2019Q3

REPORT INFORMATION
  Report Type: Spontaneous
  Country: US (occurrence: US)
  Receive Date: 20190725
  Receipt Date: 20190725
  Transmission Date: 20191004
  Serious: Yes (Other)
  Sender: FDA-Public Use
  Company Number: None

PATIENT
  Age: 82 Year
  Sex: Female
  Weight: 70.2 kg

DRUGS (1)
  1. CLINDAMYCIN. [Suspect]
     Active Substance: CLINDAMYCIN
     Indication: ORAL INFECTION
     Dosage: ?          QUANTITY:1 CAPSULE(S);?
     Route: 048
     Dates: start: 20190722, end: 20190723

REACTIONS (6)
  - Pollakiuria [None]
  - Cardiac disorder [None]
  - Taste disorder [None]
  - Respiratory distress [None]
  - Ocular hyperaemia [None]
  - Muscle spasms [None]

NARRATIVE: CASE EVENT DATE: 20190722
